FAERS Safety Report 8575491-5 (Version None)
Quarter: 2012Q2

REPORT INFORMATION
  Report Type: 
  Country: None (occurrence: None)
  Receive Date: 20120423
  Receipt Date: 20100618
  Transmission Date: 20120825
  Serious: Yes (Death)
  Sender: FDA-Public Use
  Company Number: PHHY2010US39889

PATIENT
  Age: 70 Year
  Sex: Male
  Weight: 97.1 kg

DRUGS (1)
  1. EXJADE [Suspect]
     Indication: MYELODYSPLASTIC SYNDROME
     Dosage: 2000 MG DAILY, ORAL
     Route: 048
     Dates: start: 20100309

REACTIONS (2)
  - NEOPLASM MALIGNANT [None]
  - ABDOMINAL DISCOMFORT [None]
